FAERS Safety Report 25422258 (Version 1)
Quarter: 2025Q2

REPORT INFORMATION
  Report Type: Spontaneous
  Country: SG (occurrence: SG)
  Receive Date: 20250611
  Receipt Date: 20250611
  Transmission Date: 20250716
  Serious: Yes (Other)
  Sender: BAYER HEALTHCARE PHARMACEUTICALS INC.
  Company Number: SG-BAYER-2025A077138

PATIENT
  Age: 62 Year
  Sex: Male

DRUGS (2)
  1. GADOBUTROL [Suspect]
     Active Substance: GADOBUTROL
     Indication: Magnetic resonance imaging pancreas
     Dates: start: 20250521, end: 20250521
  2. GADOBUTROL [Suspect]
     Active Substance: GADOBUTROL
     Indication: Magnetic resonance imaging abnormal
     Dates: start: 20250526, end: 20250526

REACTIONS (4)
  - Hypoaesthesia [Recovered/Resolved]
  - Dysphonia [Recovered/Resolved]
  - Unresponsive to stimuli [Recovered/Resolved]
  - Rash [Recovered/Resolved]

NARRATIVE: CASE EVENT DATE: 20250521
